FAERS Safety Report 7010014-3 (Version None)
Quarter: 2010Q3

REPORT INFORMATION
  Report Type: 
  Country: None (occurrence: None)
  Receive Date: 20100923
  Receipt Date: 20100913
  Transmission Date: 20110219
  Serious: Yes (Death)
  Sender: FDA-Public Use
  Company Number: US-WATSON-2010-12640

PATIENT
  Age: 56 Year
  Sex: Female

DRUGS (4)
  1. PREDNISONE (WATSON LABORATORIES) [Suspect]
     Indication: NON-HODGKIN'S LYMPHOMA
     Dosage: 5 MG, DAILY
     Route: 048
  2. CYCLOPHOSPHAMIDE [Suspect]
     Indication: NON-HODGKIN'S LYMPHOMA
     Dosage: 750 MG/MM
     Route: 042
  3. DOXORUBICIN HCL [Suspect]
     Indication: NON-HODGKIN'S LYMPHOMA
     Dosage: 50 MG/MM
     Route: 042
  4. VINCRISTINE [Suspect]
     Indication: NON-HODGKIN'S LYMPHOMA
     Dosage: 1.4MG/MM
     Route: 042

REACTIONS (1)
  - LEUKOENCEPHALOPATHY [None]
